FAERS Safety Report 8024058-6 (Version None)
Quarter: 2012Q1

REPORT INFORMATION
  Report Type: 
  Country: None (occurrence: None)
  Receive Date: 20120103
  Receipt Date: 20111219
  Transmission Date: 20120608
  Serious: Yes (Other)
  Sender: FDA-Public Use
  Company Number: 1142301

PATIENT
  Age: 69 Year
  Sex: Male
  Weight: 81.82 kg

DRUGS (4)
  1. CEFUROXIME SODIUM [Suspect]
     Indication: PROPHYLAXIS
     Dosage: UNKNOWN, UNKNOWN, UNKNOWN, OPHTHALMIC
     Route: 047
     Dates: start: 20110725, end: 20110725
  2. CEFUROXIME SODIUM [Suspect]
     Indication: WOUND TREATMENT
     Dosage: UNKNOWN, UNKNOWN, UNKNOWN, OPHTHALMIC
     Route: 047
     Dates: start: 20110725, end: 20110725
  3. BSS [Suspect]
     Indication: THERAPEUTIC PROCEDURE
     Dosage: 1 BOTTLE, UNKNOWN, UNKNOWN, INTRAOCULAR
     Route: 031
     Dates: start: 20110725, end: 20110725
  4. EPINEPHRINE [Suspect]
     Indication: THERAPEUTIC PROCEDURE
     Dosage: 0.2 ML IN BSS, UNKNOWN, UNKNOWN, INTRAOCULAR
     Route: 031
     Dates: start: 20110725, end: 20110725

REACTIONS (5)
  - EYE INFECTION [None]
  - VISUAL IMPAIRMENT [None]
  - STAPHYLOCOCCUS TEST POSITIVE [None]
  - POST PROCEDURAL COMPLICATION [None]
  - RETINAL HAEMORRHAGE [None]
